FAERS Safety Report 6784847-2 (Version None)
Quarter: 2010Q2

REPORT INFORMATION
  Report Type: 
  Country: None (occurrence: None)
  Receive Date: 20100622
  Receipt Date: 20100308
  Transmission Date: 20101027
  Serious: Yes (Death)
  Sender: FDA-Public Use
  Company Number: IE-GENZYME-CLOF-1000844

PATIENT
  Sex: Female
  Weight: 9.2 kg

DRUGS (8)
  1. EVOLTRA [Suspect]
     Indication: ACUTE LEUKAEMIA
     Dosage: 40 MG/M2, QDX5
     Route: 042
     Dates: start: 20091008, end: 20091012
  2. EVOLTRA [Suspect]
     Dosage: 40 MG/M2, QDX5
     Route: 042
     Dates: start: 20091008, end: 20091012
  3. METHOTREXATE [Suspect]
     Indication: ACUTE LEUKAEMIA
     Dosage: 8 MG, UNK
     Route: 039
  4. CYCLOPHOSPHAMIDE [Suspect]
     Indication: ACUTE LEUKAEMIA
     Dosage: 300 MG/M2, QDX5
     Route: 042
     Dates: start: 20091008, end: 20091012
  5. ETOPOSIDE [Suspect]
     Indication: ACUTE LEUKAEMIA
     Dosage: 100 MG/M2, QDX5
     Route: 042
     Dates: start: 20091008, end: 20091012
  6. PEG-ASPARAGINASE [Suspect]
     Indication: ACUTE LEUKAEMIA
     Dosage: 1000 U, DAY 15
     Route: 030
     Dates: start: 20091022, end: 20091022
  7. DEXAMETHASONE ACETATE [Suspect]
     Indication: ACUTE LEUKAEMIA
     Dosage: 10 MG/M2, QD (DAY 1-7)
     Route: 048
     Dates: start: 20091008, end: 20091014
  8. DEXAMETHASONE ACETATE [Suspect]
     Dosage: 10 MG/M2, QD(DAY 15-21)
     Route: 048
     Dates: start: 20091022, end: 20091028

REACTIONS (1)
  - ADENOVIRUS INFECTION [None]
